FAERS Safety Report 7314302-2 (Version None)
Quarter: 2011Q1

REPORT INFORMATION
  Report Type: 
  Country: None (occurrence: None)
  Receive Date: 20110225
  Receipt Date: 20100726
  Transmission Date: 20110831
  Serious: No
  Sender: FDA-Public Use
  Company Number: US-MYLANLABS-2010S1012592

PATIENT
  Sex: Female

DRUGS (3)
  1. AMNESTEEM [Suspect]
     Indication: ACNE
     Dates: start: 20100401
  2. AMNESTEEM [Suspect]
     Dates: start: 20100401
  3. YASMIN [Concomitant]

REACTIONS (2)
  - DRY EYE [None]
  - ULCERATIVE KERATITIS [None]
